FAERS Safety Report 4406593-2 (Version None)
Quarter: 2004Q3

REPORT INFORMATION
  Report Type: 
  Country: None (occurrence: None)
  Receive Date: 20040723
  Receipt Date: 20040712
  Transmission Date: 20050211
  Serious: Yes (Life-Threatening)
  Sender: FDA-Public Use
  Company Number: GB-GLAXOSMITHKLINE-B0338768A

PATIENT
  Age: 71 Year
  Sex: Female

DRUGS (2)
  1. PAROXETINE HCL [Suspect]
     Indication: DEPRESSION
     Dosage: 30MG PER DAY
     Route: 048
     Dates: start: 19981001
  2. LITHIUM [Suspect]
     Indication: BIPOLAR DISORDER
     Dosage: 600MG AT NIGHT
     Route: 048
     Dates: start: 19860101

REACTIONS (1)
  - THERAPEUTIC AGENT TOXICITY [None]
